FAERS Safety Report 18019199 (Version 7)
Quarter: 2020Q4

REPORT INFORMATION
  Report Type: Spontaneous
  Country: JP (occurrence: JP)
  Receive Date: 20200714
  Receipt Date: 20201016
  Transmission Date: 20210113
  Serious: Yes (Other)
  Sender: FDA-Public Use
  Company Number: NVSJ2020JP006529

PATIENT
  Age: 83 Year
  Sex: Male

DRUGS (4)
  1. EYLEA [Suspect]
     Active Substance: AFLIBERCEPT
     Indication: PRODUCT USED FOR UNKNOWN INDICATION
     Dosage: 5 DOSES
     Route: 031
     Dates: start: 20190905
  2. BEOVU [Suspect]
     Active Substance: BROLUCIZUMAB-DBLL
     Dosage: 6 MG
     Route: 031
     Dates: start: 20200704, end: 20200704
  3. EYLEA [Suspect]
     Active Substance: AFLIBERCEPT
     Dosage: UNK
     Route: 031
     Dates: start: 20200405, end: 20200521
  4. BEOVU [Suspect]
     Active Substance: BROLUCIZUMAB-DBLL
     Indication: AGE-RELATED MACULAR DEGENERATION
     Dosage: 6 MG
     Route: 031
     Dates: start: 20200624, end: 20200624

REACTIONS (14)
  - Visual acuity reduced [Unknown]
  - Retinal vasculitis [Not Recovered/Not Resolved]
  - Delirium [Unknown]
  - Cytomegalovirus chorioretinitis [Unknown]
  - Swelling of eyelid [Unknown]
  - Sarcoidosis [Unknown]
  - Depressed mood [Unknown]
  - C-reactive protein increased [Unknown]
  - Iritis [Not Recovered/Not Resolved]
  - Decreased appetite [Unknown]
  - Conjunctival hyperaemia [Unknown]
  - Arteritis [Not Recovered/Not Resolved]
  - Feeling abnormal [Unknown]
  - Retinal pigment epithelial tear [Not Recovered/Not Resolved]

NARRATIVE: CASE EVENT DATE: 20200704
